FAERS Safety Report 7513384-2 (Version None)
Quarter: 2011Q2

REPORT INFORMATION
  Report Type: 
  Country: None (occurrence: None)
  Receive Date: 20110525
  Receipt Date: 20110525
  Transmission Date: 20111010
  Serious: No
  Sender: FDA-Public Use
  Company Number: None

PATIENT
  Age: 73 Year
  Sex: Male
  Weight: 91.6266 kg

DRUGS (1)
  1. NYSTATIN [Suspect]
     Indication: ORAL FUNGAL INFECTION
     Dosage: 15 ML 3 TIMES DAILY
     Dates: start: 20110506

REACTIONS (1)
  - COUGH [None]
